FAERS Safety Report 9366436 (Version 1)
Quarter: 2013Q2

REPORT INFORMATION
  Report Type: Spontaneous
  Country: GB (occurrence: GB)
  Receive Date: 20130625
  Receipt Date: 20130625
  Transmission Date: 20140414
  Serious: Yes (Other)
  Sender: FDA-Public Use
  Company Number: GB-JNJFOC-20130610941

PATIENT
  Sex: Male

DRUGS (1)
  1. IMODIUM CLASSIC [Suspect]
     Indication: DIARRHOEA
     Route: 048
     Dates: start: 20130529, end: 20130529

REACTIONS (2)
  - Thinking abnormal [Unknown]
  - Feeling abnormal [Unknown]
